FAERS Safety Report 8254828-0 (Version None)
Quarter: 2012Q2

REPORT INFORMATION
  Report Type: 
  Country: None (occurrence: None)
  Receive Date: 20120403
  Receipt Date: 20120329
  Transmission Date: 20120825
  Serious: Yes (Hospitalization, Other)
  Sender: FDA-Public Use
  Company Number: PHEH2012US007036

PATIENT
  Sex: Female

DRUGS (1)
  1. FEMARA [Suspect]
     Indication: BREAST CANCER

REACTIONS (13)
  - ABDOMINAL PAIN UPPER [None]
  - HEPATOMEGALY [None]
  - NEOPLASM PROGRESSION [None]
  - DIARRHOEA [None]
  - PANCREATITIS [None]
  - PAIN [None]
  - METASTASES TO BONE [None]
  - ABDOMINAL DISTENSION [None]
  - FATIGUE [None]
  - ABDOMINAL PAIN [None]
  - NEOPLASM MALIGNANT [None]
  - METASTASES TO LIVER [None]
  - WAIST CIRCUMFERENCE INCREASED [None]
